FAERS Safety Report 19997837 (Version 2)
Quarter: 2021Q4

REPORT INFORMATION
  Report Type: Report from Study
  Country: US (occurrence: US)
  Receive Date: 20211026
  Receipt Date: 20211101
  Transmission Date: 20220303
  Serious: Yes (Hospitalization)
  Sender: FDA-Public Use
  Company Number: US-JNJFOC-20211039204

PATIENT
  Age: 79 Year
  Sex: Female
  Weight: 60.9 kg

DRUGS (4)
  1. SELEXIPAG [Suspect]
     Active Substance: SELEXIPAG
     Indication: Pulmonary arterial hypertension
     Route: 048
  2. SELEXIPAG [Suspect]
     Active Substance: SELEXIPAG
     Route: 048
  3. ADCIRCA [Concomitant]
     Active Substance: TADALAFIL
  4. TADALAFIL [Concomitant]
     Active Substance: TADALAFIL

REACTIONS (9)
  - Rectal haemorrhage [Unknown]
  - Headache [Unknown]
  - Drug intolerance [Unknown]
  - Product dose omission issue [Unknown]
  - COVID-19 [Unknown]
  - Pain in extremity [Unknown]
  - Vomiting [Unknown]
  - Post-acute COVID-19 syndrome [Unknown]
  - Dyspnoea [Unknown]

NARRATIVE: CASE EVENT DATE: 20211016
